FAERS Safety Report 18103666 (Version 1)
Quarter: 2020Q3

REPORT INFORMATION
  Report Type: Spontaneous
  Country: CA (occurrence: CA)
  Receive Date: 20200803
  Receipt Date: 20200803
  Transmission Date: 20201103
  Serious: Yes (Life-Threatening, Hospitalization)
  Sender: FDA-Public Use
  Company Number: CA-PFIZER INC-2020290696

PATIENT
  Age: 41 Year
  Sex: Male

DRUGS (6)
  1. RILPIVIRINE [Concomitant]
     Active Substance: RILPIVIRINE
     Indication: HIV INFECTION
     Dosage: 3 ML, CYCLIC
     Route: 030
  2. COCAINE [Suspect]
     Active Substance: COCAINE
     Route: 065
  3. CABOTEGRAVIR [Concomitant]
     Active Substance: CABOTEGRAVIR
     Indication: HIV INFECTION
     Dosage: 3 ML, CYCLIC
     Route: 030
  4. CABOTEGRAVIR [Concomitant]
     Active Substance: CABOTEGRAVIR
     Indication: HIV INFECTION
     Dosage: 3 ML, CYCLIC
     Route: 030
  5. FENTANYL. [Suspect]
     Active Substance: FENTANYL
     Route: 065
  6. RILPIVIRINE [Concomitant]
     Active Substance: RILPIVIRINE
     Indication: HIV INFECTION
     Dosage: 3 ML, CYCLIC
     Route: 030

REACTIONS (3)
  - Respiratory acidosis [Unknown]
  - Overdose [Unknown]
  - Acute kidney injury [Unknown]
